FAERS Safety Report 19924006 (Version 4)
Quarter: 2021Q4

REPORT INFORMATION
  Report Type: Spontaneous
  Country: US (occurrence: US)
  Receive Date: 20211006
  Receipt Date: 20211126
  Transmission Date: 20220303
  Serious: No
  Sender: FDA-Public Use
  Company Number: US-AMGEN-USASP2021152214

PATIENT
  Age: 4 Year
  Sex: Male
  Weight: 18 kg

DRUGS (41)
  1. NPLATE [Suspect]
     Active Substance: ROMIPLOSTIM
     Indication: Immune thrombocytopenia
     Dosage: 2 MICROGRAM/KG, QWK
     Route: 058
     Dates: start: 20191004
  2. NPLATE [Suspect]
     Active Substance: ROMIPLOSTIM
     Dosage: 4-5 MCG/KG
     Route: 058
     Dates: start: 20191004
  3. NPLATE [Suspect]
     Active Substance: ROMIPLOSTIM
     Dosage: 10 MICROGRAM/KG, QWK
     Route: 065
     Dates: start: 2021
  4. NPLATE [Suspect]
     Active Substance: ROMIPLOSTIM
     Dosage: 48 MICROGRAM
     Route: 058
     Dates: start: 20191010
  5. NPLATE [Suspect]
     Active Substance: ROMIPLOSTIM
     Dosage: 40 MICROGRAM
     Route: 058
     Dates: start: 20191003
  6. NPLATE [Suspect]
     Active Substance: ROMIPLOSTIM
     Dosage: 4 MICROGRAM
     Route: 058
     Dates: start: 20191024
  7. NPLATE [Suspect]
     Active Substance: ROMIPLOSTIM
     Dosage: 4 MICROGRAM (PER KG)
     Route: 058
     Dates: start: 20191031
  8. NPLATE [Suspect]
     Active Substance: ROMIPLOSTIM
     Dosage: 4 MICROGRAM (PER KG)
     Route: 058
     Dates: start: 20191107
  9. NPLATE [Suspect]
     Active Substance: ROMIPLOSTIM
     Dosage: 5 MICROGRAM (PER KG)
     Route: 058
     Dates: start: 20191114
  10. NPLATE [Suspect]
     Active Substance: ROMIPLOSTIM
     Dosage: 5 MICROGRAM (PER KG)
     Route: 058
     Dates: start: 20191127
  11. NPLATE [Suspect]
     Active Substance: ROMIPLOSTIM
     Dosage: 5 MICROGRAM (PER KG)
     Route: 058
     Dates: start: 20191121
  12. NPLATE [Suspect]
     Active Substance: ROMIPLOSTIM
     Dosage: 5 MICROGRAM (PER KG)
     Route: 058
     Dates: start: 20191205
  13. NPLATE [Suspect]
     Active Substance: ROMIPLOSTIM
     Dosage: 70 MICROGRAM
     Route: 058
     Dates: start: 20191211
  14. NPLATE [Suspect]
     Active Substance: ROMIPLOSTIM
     Dosage: 70 MICROGRAM
     Route: 058
     Dates: start: 20191216
  15. NPLATE [Suspect]
     Active Substance: ROMIPLOSTIM
     Dosage: 70 MICROGRAM
     Route: 058
     Dates: start: 20191227
  16. NPLATE [Suspect]
     Active Substance: ROMIPLOSTIM
     Dosage: 70 MICROGRAM
     Route: 058
     Dates: start: 20200102
  17. NPLATE [Suspect]
     Active Substance: ROMIPLOSTIM
     Dosage: 4 MICROGRAM (PER KG)
     Route: 058
     Dates: start: 20200116
  18. NPLATE [Suspect]
     Active Substance: ROMIPLOSTIM
     Dosage: 4 MICROGRAM (PER KG)
     Route: 058
     Dates: start: 20200123
  19. NPLATE [Suspect]
     Active Substance: ROMIPLOSTIM
     Dosage: 4 MICROGRAM (PER KG)
     Route: 058
     Dates: start: 20200130
  20. NPLATE [Suspect]
     Active Substance: ROMIPLOSTIM
     Dosage: 4 MICROGRAM (PER KG)
     Route: 058
     Dates: start: 20200206
  21. NPLATE [Suspect]
     Active Substance: ROMIPLOSTIM
     Dosage: 4 MICROGRAM (PER KG)
     Route: 058
     Dates: start: 20200213
  22. NPLATE [Suspect]
     Active Substance: ROMIPLOSTIM
     Dosage: 4 MICROGRAM (PER KG)
     Route: 058
     Dates: start: 20200220
  23. NPLATE [Suspect]
     Active Substance: ROMIPLOSTIM
     Dosage: 55 MICROGRAM
     Route: 058
     Dates: start: 20200313
  24. NPLATE [Suspect]
     Active Substance: ROMIPLOSTIM
     Dosage: 70 MICROGRAM
     Route: 058
     Dates: start: 20200319
  25. NPLATE [Suspect]
     Active Substance: ROMIPLOSTIM
     Dosage: 70 MICROGRAM
     Route: 058
     Dates: start: 20200326
  26. NPLATE [Suspect]
     Active Substance: ROMIPLOSTIM
     Dosage: 70 MICROGRAM
     Route: 058
     Dates: start: 20200409
  27. NPLATE [Suspect]
     Active Substance: ROMIPLOSTIM
     Dosage: 70 MICROGRAM
     Route: 058
     Dates: start: 20200715
  28. NPLATE [Suspect]
     Active Substance: ROMIPLOSTIM
     Dosage: 95 MICROGRAM
     Route: 058
     Dates: start: 20200917
  29. NPLATE [Suspect]
     Active Substance: ROMIPLOSTIM
     Dosage: 110 MICROGRAM
     Route: 058
     Dates: start: 20200924
  30. NPLATE [Suspect]
     Active Substance: ROMIPLOSTIM
     Dosage: 125 MICROGRAM
     Route: 058
     Dates: start: 20201007
  31. NPLATE [Suspect]
     Active Substance: ROMIPLOSTIM
     Dosage: 110 MICROGRAM
     Route: 058
     Dates: start: 20201113
  32. NPLATE [Suspect]
     Active Substance: ROMIPLOSTIM
     Dosage: 110 MICROGRAM
     Route: 058
     Dates: start: 20201203
  33. NPLATE [Suspect]
     Active Substance: ROMIPLOSTIM
     Dosage: 125 MICROGRAM
     Route: 058
     Dates: start: 20201217
  34. NPLATE [Suspect]
     Active Substance: ROMIPLOSTIM
     Dosage: 125 MICROGRAM, QWK
     Route: 058
     Dates: start: 20210107
  35. NPLATE [Suspect]
     Active Substance: ROMIPLOSTIM
     Dosage: 125 MICROGRAM, QWK
     Route: 058
     Dates: start: 20210128
  36. NPLATE [Suspect]
     Active Substance: ROMIPLOSTIM
     Dosage: 110 MICROGRAM, QWK
     Route: 058
     Dates: start: 20210415
  37. NPLATE [Suspect]
     Active Substance: ROMIPLOSTIM
     Dosage: 95 MICROGRAM, QWK
     Route: 058
     Dates: start: 20210428
  38. NPLATE [Suspect]
     Active Substance: ROMIPLOSTIM
     Dosage: 115 MICROGRAM, QWK
     Route: 058
     Dates: start: 20210714
  39. NPLATE [Suspect]
     Active Substance: ROMIPLOSTIM
     Dosage: 130 MICROGRAM, QWK
     Route: 058
     Dates: start: 20210818
  40. NPLATE [Suspect]
     Active Substance: ROMIPLOSTIM
     Dosage: 150 MICROGRAM, QWK
     Route: 058
     Dates: start: 20210825
  41. NPLATE [Suspect]
     Active Substance: ROMIPLOSTIM
     Dosage: 170 MICROGRAM, QWK
     Route: 058
     Dates: start: 20210902

REACTIONS (2)
  - Loss of therapeutic response [Not Recovered/Not Resolved]
  - Epistaxis [Recovered/Resolved]

NARRATIVE: CASE EVENT DATE: 20210101
